FAERS Safety Report 11231349 (Version 1)
Quarter: 2015Q3

REPORT INFORMATION
  Report Type: Report from Study
  Country: US (occurrence: US)
  Receive Date: 20150701
  Receipt Date: 20150701
  Transmission Date: 20151125
  Serious: Yes (Hospitalization, Other)
  Sender: FDA-Public Use
  Company Number: US-GILEAD-2015-0160952

PATIENT
  Age: 60 Year
  Sex: Female

DRUGS (13)
  1. ASPIRIN                            /00002701/ [Concomitant]
     Active Substance: ASPIRIN
  2. ACYCLOVIR                          /00587301/ [Concomitant]
     Active Substance: ACYCLOVIR
  3. HYDROCODONE [Concomitant]
     Active Substance: HYDROCODONE
  4. OMEPRAZOLE. [Concomitant]
     Active Substance: OMEPRAZOLE
  5. MORPHINE [Concomitant]
     Active Substance: MORPHINE
  6. AMOXICILLIN. [Concomitant]
     Active Substance: AMOXICILLIN
  7. ONDANSETRON [Concomitant]
     Active Substance: ONDANSETRON
  8. FLAXSEED [Concomitant]
     Active Substance: FLAX SEED
  9. AMBRISENTAN [Suspect]
     Active Substance: AMBRISENTAN
     Indication: PULMONARY HYPERTENSION
     Dosage: 10 MG, QD
     Route: 065
     Dates: start: 20130129
  10. OXYCODONE [Concomitant]
     Active Substance: OXYCODONE
  11. CALCIUM [Concomitant]
     Active Substance: CALCIUM
  12. VITAMIN D3 [Concomitant]
     Active Substance: CHOLECALCIFEROL
  13. CIALIS [Concomitant]
     Active Substance: TADALAFIL

REACTIONS (1)
  - Oesophageal haemorrhage [Unknown]

NARRATIVE: CASE EVENT DATE: 20150601
